FAERS Safety Report 9473916 (Version 1)
Quarter: 2013Q3

REPORT INFORMATION
  Report Type: Spontaneous
  Country: IL (occurrence: None)
  Receive Date: 20130820
  Receipt Date: 20130820
  Transmission Date: 20140515
  Serious: Yes (Hospitalization)
  Sender: FDA-Public Use
  Company Number: 2013P1017564

PATIENT
  Age: 7 Year
  Sex: Female

DRUGS (3)
  1. VALPROATE SODIUM [Suspect]
     Indication: EPILEPSY
  2. SULFTHIAME [Concomitant]
  3. CLONAZEPAM [Concomitant]

REACTIONS (14)
  - General physical health deterioration [None]
  - Hypophagia [None]
  - Somnolence [None]
  - Unresponsive to stimuli [None]
  - Oedema peripheral [None]
  - Jugular vein distension [None]
  - Respiratory acidosis [None]
  - Thrombocytopenia [None]
  - Hypoproteinaemia [None]
  - Hypoalbuminaemia [None]
  - Anticonvulsant drug level increased [None]
  - Product formulation issue [None]
  - Incorrect dose administered [None]
  - Toxicity to various agents [None]
